FAERS Safety Report 13953947 (Version 1)
Quarter: 2017Q3

REPORT INFORMATION
  Report Type: Spontaneous
  Country: US (occurrence: US)
  Receive Date: 20170911
  Receipt Date: 20170911
  Transmission Date: 20171128
  Serious: No
  Sender: FDA-Public Use
  Company Number: US-TEVA-764492ACC

PATIENT
  Age: 58 Year
  Sex: Female

DRUGS (2)
  1. VENLAFAXINE [Suspect]
     Active Substance: VENLAFAXINE HYDROCHLORIDE
     Indication: ANXIETY
  2. VENLAFAXINE [Suspect]
     Active Substance: VENLAFAXINE HYDROCHLORIDE
     Indication: ANTIDEPRESSANT THERAPY

REACTIONS (9)
  - Dizziness [Unknown]
  - Agitation [Unknown]
  - Confusional state [Unknown]
  - Headache [Unknown]
  - Feeling abnormal [Unknown]
  - Anxiety [Unknown]
  - Nervousness [Unknown]
  - Ocular discomfort [Unknown]
  - Dysphoria [Unknown]
